FAERS Safety Report 24916849 (Version 1)
Quarter: 2025Q1

REPORT INFORMATION
  Report Type: Spontaneous
  Country: JP (occurrence: JP)
  Receive Date: 20250203
  Receipt Date: 20250203
  Transmission Date: 20250409
  Serious: Yes (Other)
  Sender: AMGEN
  Company Number: JP-AMGEN-JPNSP2025019706

PATIENT
  Age: 62 Year
  Sex: Male

DRUGS (6)
  1. CINACALCET HYDROCHLORIDE [Suspect]
     Active Substance: CINACALCET HYDROCHLORIDE
     Indication: Product used for unknown indication
     Route: 065
  2. CEFMETAZOLE [Concomitant]
     Active Substance: CEFMETAZOLE
     Dosage: 1 GRAM, Q8H
  3. MENATETRENONE [Concomitant]
     Active Substance: MENATETRENONE
  4. PREGABALIN [Concomitant]
     Active Substance: PREGABALIN
  5. TRAMADOL [Concomitant]
     Active Substance: TRAMADOL
  6. LANSOPRAZOLE [Concomitant]
     Active Substance: LANSOPRAZOLE

REACTIONS (3)
  - Renal cyst infection [Unknown]
  - Pyelonephritis [Unknown]
  - Pyrexia [Unknown]
